FAERS Safety Report 13418926 (Version 1)
Quarter: 2017Q2

REPORT INFORMATION
  Report Type: Spontaneous
  Country: US (occurrence: US)
  Receive Date: 20170407
  Receipt Date: 20170407
  Transmission Date: 20170830
  Serious: No
  Sender: FDA-Public Use
  Company Number: US-BRISTOL-MYERS SQUIBB COMPANY-BMS-2017-028845

PATIENT
  Sex: Female
  Weight: 104.3 kg

DRUGS (1)
  1. OPDIVO [Suspect]
     Active Substance: NIVOLUMAB
     Indication: LUNG CARCINOMA CELL TYPE UNSPECIFIED STAGE IV
     Dosage: 10 ROUNDS
     Route: 042
     Dates: start: 201701

REACTIONS (3)
  - Abdominal discomfort [Unknown]
  - Joint stiffness [Unknown]
  - Rash [Unknown]
